FAERS Safety Report 4486878-4 (Version None)
Quarter: 2004Q4

REPORT INFORMATION
  Report Type: 
  Country: None (occurrence: None)
  Receive Date: 20041027
  Receipt Date: 20041018
  Transmission Date: 20050328
  Serious: Yes (Disabling)
  Sender: FDA-Public Use
  Company Number: US-MERCK-0410USA02771

PATIENT
  Age: 48 Year
  Sex: Female

DRUGS (10)
  1. VIOXX [Suspect]
     Indication: ANALGESIC EFFECT
     Route: 048
     Dates: start: 20020611, end: 20020722
  2. ULTRACET [Concomitant]
     Route: 065
  3. PIROXICAM [Concomitant]
     Route: 065
  4. DICLOFENAC [Concomitant]
     Route: 065
  5. [THERAPY UNSPECIFIED] [Concomitant]
     Route: 065
  6. HYDROCHLOROTHIAZIDE [Concomitant]
     Route: 065
  7. VERAPAMIL [Concomitant]
     Route: 065
  8. FLUOXETINE [Concomitant]
     Route: 065
  9. INSULIN [Concomitant]
     Route: 065
  10. [THERAPY UNSPECIFIED] [Concomitant]
     Route: 065

REACTIONS (4)
  - CEREBROVASCULAR ACCIDENT [None]
  - FEELING ABNORMAL [None]
  - PAIN [None]
  - RENAL DISORDER [None]
